FAERS Safety Report 25633051 (Version 1)
Quarter: 2025Q3

REPORT INFORMATION
  Report Type: Spontaneous
  Country: US (occurrence: US)
  Receive Date: 20250801
  Receipt Date: 20250801
  Transmission Date: 20251020
  Serious: No
  Sender: LUPIN
  Company Number: US-LUPIN PHARMACEUTICALS INC.-2025-06661

PATIENT
  Age: 43 Year

DRUGS (1)
  1. ALBUTEROL SULFATE [Suspect]
     Active Substance: ALBUTEROL SULFATE
     Indication: Asthma
     Dosage: 2 PUFFS, QD (ONE IN THE MORNING AND ANOTHER ONE IN THE EVENING, OR AS NEEDED)

REACTIONS (2)
  - Therapeutic product effect delayed [Unknown]
  - Device malfunction [Unknown]
